FAERS Safety Report 5055349-9 (Version None)
Quarter: 2006Q3

REPORT INFORMATION
  Report Type: 
  Country: None (occurrence: None)
  Receive Date: 20060718
  Receipt Date: 20060718
  Transmission Date: 20061208
  Serious: Yes (Hospitalization)
  Sender: FDA-Public Use
  Company Number: None

PATIENT
  Age: 87 Year
  Sex: Male

DRUGS (7)
  1. METOPROLOL TARTRATE [Suspect]
     Indication: HYPERTENSION
     Dosage: 50 MG BID
     Dates: start: 20040501
  2. TRAMADOL HCL [Suspect]
     Indication: PAIN
     Dosage: 50 MG TID PRN
     Dates: start: 20060404
  3. BACLOFEN [Concomitant]
  4. ZOCOR [Concomitant]
  5. ISOSORBIDE DINITRATE [Concomitant]
  6. OMEPRAZOLE [Concomitant]
  7. FOSINOPRIL SODIUM [Concomitant]

REACTIONS (2)
  - BRADYCARDIA [None]
  - DIZZINESS [None]
